FAERS Safety Report 13486597 (Version 1)
Quarter: 2017Q2

REPORT INFORMATION
  Report Type: Report from Study
  Country: US (occurrence: US)
  Receive Date: 20170426
  Receipt Date: 20170426
  Transmission Date: 20170830
  Serious: Yes (Hospitalization, Other)
  Sender: FDA-Public Use
  Company Number: US-BAYER-2015-213807

PATIENT
  Age: 49 Year
  Sex: Female
  Weight: 86.17 kg

DRUGS (11)
  1. ADEMPAS [Suspect]
     Active Substance: RIOCIGUAT
     Indication: PULMONARY ARTERIAL HYPERTENSION
     Dosage: 0.5 MG, TID
     Route: 048
     Dates: start: 20150417
  2. ADEMPAS [Suspect]
     Active Substance: RIOCIGUAT
     Indication: PULMONARY ARTERIAL HYPERTENSION
     Dosage: 2.5 MG, TID
     Route: 048
  3. ADEMPAS [Suspect]
     Active Substance: RIOCIGUAT
     Indication: PULMONARY ARTERIAL HYPERTENSION
     Dosage: 2 MG, TID
     Route: 048
  4. TRACLEER [Concomitant]
     Active Substance: BOSENTAN
     Dosage: UNK
  5. ADEMPAS [Suspect]
     Active Substance: RIOCIGUAT
     Indication: PULMONARY ARTERIAL HYPERTENSION
     Dosage: 2 MG, TID
     Route: 048
  6. ADEMPAS [Suspect]
     Active Substance: RIOCIGUAT
     Indication: PULMONARY ARTERIAL HYPERTENSION
     Dosage: 2.5 MG, TID
     Route: 048
  7. OXYGEN. [Concomitant]
     Active Substance: OXYGEN
     Dosage: 2 L.M
  8. COUMADIN [Suspect]
     Active Substance: WARFARIN SODIUM
  9. ADCIRCA [Concomitant]
     Active Substance: TADALAFIL
     Dosage: UNK
  10. ADEMPAS [Suspect]
     Active Substance: RIOCIGUAT
     Indication: PULMONARY ARTERIAL HYPERTENSION
     Dosage: 1.5 MG, TID
     Route: 048
  11. ADEMPAS [Suspect]
     Active Substance: RIOCIGUAT
     Indication: PULMONARY ARTERIAL HYPERTENSION
     Dosage: 2.5 MG, TID
     Route: 048

REACTIONS (22)
  - Oedema peripheral [Unknown]
  - Malaise [Unknown]
  - Abdominal distension [Unknown]
  - Fatigue [Unknown]
  - Drug ineffective [Unknown]
  - Joint swelling [None]
  - Blood pressure systolic decreased [Unknown]
  - Pollakiuria [None]
  - Memory impairment [Not Recovered/Not Resolved]
  - Feeling abnormal [None]
  - Abdominal distension [None]
  - Vomiting [Unknown]
  - Thinking abnormal [Unknown]
  - Epistaxis [Unknown]
  - Dyspnoea [None]
  - Ascites [Unknown]
  - Hospitalisation [None]
  - Dyspnoea [Unknown]
  - Fluid retention [Unknown]
  - Drug ineffective [None]
  - Localised oedema [Unknown]
  - Hypotension [None]
